FAERS Safety Report 15966334 (Version 1)
Quarter: 2019Q1

REPORT INFORMATION
  Report Type: Spontaneous
  Country: US (occurrence: US)
  Receive Date: 20190123
  Receipt Date: 20190123
  Transmission Date: 20190418
  Serious: Yes (Hospitalization)
  Sender: FDA-Public Use
  Company Number: None

PATIENT
  Age: 8 Year
  Sex: Female
  Weight: 21.3 kg

DRUGS (4)
  1. VINCRISTINE SULFATE. [Suspect]
     Active Substance: VINCRISTINE SULFATE
     Dates: end: 20180130
  2. CYCLOPHOSPHAMIDE. [Suspect]
     Active Substance: CYCLOPHOSPHAMIDE
     Dates: end: 20180227
  3. CYTARABINE. [Suspect]
     Active Substance: CYTARABINE
     Dates: end: 20180306
  4. ONCASPAR [Concomitant]
     Active Substance: PEGASPARGASE
     Dates: end: 20180202

REACTIONS (5)
  - Streptococcal bacteraemia [None]
  - Streptococcus test positive [None]
  - Respiratory viral panel [None]
  - Coronavirus test positive [None]
  - Neutropenia [None]

NARRATIVE: CASE EVENT DATE: 20180306
